FAERS Safety Report 20042476 (Version 1)
Quarter: 2021Q4

REPORT INFORMATION
  Report Type: Spontaneous
  Country: US (occurrence: US)
  Receive Date: 20211108
  Receipt Date: 20211108
  Transmission Date: 20220303
  Serious: No
  Sender: FDA-Public Use
  Company Number: US-SA-SAC20211101001326

PATIENT
  Age: 62 Year
  Sex: Female

DRUGS (1)
  1. DUPIXENT [Suspect]
     Active Substance: DUPILUMAB
     Indication: Asthma
     Dosage: 300MG/2ML, 300 MG, QOW
     Route: 058
     Dates: start: 201912

REACTIONS (6)
  - Visual impairment [Unknown]
  - Balance disorder [Unknown]
  - Coordination abnormal [Unknown]
  - Eye pruritus [Unknown]
  - Eye discharge [Unknown]
  - Product use issue [Unknown]

NARRATIVE: CASE EVENT DATE: 20191201
